FAERS Safety Report 16811672 (Version 2)
Quarter: 2020Q4

REPORT INFORMATION
  Report Type: Report from Study
  Country: AU (occurrence: AU)
  Receive Date: 20190916
  Receipt Date: 20201221
  Transmission Date: 20210113
  Serious: Yes (Other)
  Sender: FDA-Public Use
  Company Number: AU-JNJFOC-20190814320

PATIENT
  Age: 11 Year
  Sex: Female
  Weight: 30 kg

DRUGS (3)
  1. REMICADE [Suspect]
     Active Substance: INFLIXIMAB
     Route: 042
  2. AZATHIOPRINE. [Concomitant]
     Active Substance: AZATHIOPRINE
     Indication: PRODUCT USED FOR UNKNOWN INDICATION
     Route: 065
  3. REMICADE [Suspect]
     Active Substance: INFLIXIMAB
     Indication: CROHN^S DISEASE
     Route: 042
     Dates: end: 20201216

REACTIONS (5)
  - Product use issue [Unknown]
  - Crohn^s disease [Not Recovered/Not Resolved]
  - Drug specific antibody [Unknown]
  - Off label use [Unknown]
  - Drug level below therapeutic [Unknown]

NARRATIVE: CASE EVENT DATE: 2019
